FAERS Safety Report 12599876 (Version 1)
Quarter: 2016Q3

REPORT INFORMATION
  Report Type: Spontaneous
  Country: US (occurrence: US)
  Receive Date: 20160727
  Receipt Date: 20160727
  Transmission Date: 20161109
  Serious: No
  Sender: FDA-Public Use
  Company Number: US-MYLANLABS-2015M1032688

PATIENT
  Sex: Female

DRUGS (1)
  1. ONDANSETRON [Suspect]
     Active Substance: ONDANSETRON
     Dosage: UNK

REACTIONS (7)
  - Malaise [Unknown]
  - Chills [Unknown]
  - Cardiac disorder [Unknown]
  - Hypertension [Unknown]
  - Headache [Unknown]
  - Tremor [Unknown]
  - Hyperhidrosis [Unknown]
